FAERS Safety Report 4455575-3 (Version None)
Quarter: 2004Q3

REPORT INFORMATION
  Report Type: 
  Country: None (occurrence: None)
  Receive Date: 20040922
  Receipt Date: 20040915
  Transmission Date: 20050211
  Serious: Yes (Other)
  Sender: FDA-Public Use
  Company Number: PHRM2004FR02832

PATIENT
  Age: 24 Year
  Sex: Female

DRUGS (2)
  1. TRILEPTAL [Suspect]
     Indication: EPILEPSY
     Route: 048
     Dates: start: 20040201
  2. DEPAKENE [Suspect]
     Indication: EPILEPSY
     Route: 048
     Dates: end: 20040201

REACTIONS (4)
  - DRUG INEFFECTIVE [None]
  - GAMMA-GLUTAMYLTRANSFERASE INCREASED [None]
  - HEPATITIS [None]
  - TRANSAMINASES INCREASED [None]
